FAERS Safety Report 13836262 (Version 3)
Quarter: 2017Q4

REPORT INFORMATION
  Report Type: Report from Study
  Country: AU (occurrence: AU)
  Receive Date: 20170804
  Receipt Date: 20171106
  Transmission Date: 20180320
  Serious: Yes (Other)
  Sender: FDA-Public Use
  Company Number: AU-REGENERON PHARMACEUTICALS, INC.-2017-19643

PATIENT

DRUGS (3)
  1. EYLEA [Suspect]
     Active Substance: AFLIBERCEPT
     Indication: NEOVASCULAR AGE-RELATED MACULAR DEGENERATION
     Dosage: UNK
     Route: 031
     Dates: start: 20151215
  2. EYLEA [Suspect]
     Active Substance: AFLIBERCEPT
     Dosage: UNK
     Route: 031
     Dates: start: 20170725, end: 20170725
  3. EYLEA [Suspect]
     Active Substance: AFLIBERCEPT
     Dosage: UNK, EVERY 5 WEEKS TO RIGHT EYE
     Route: 031

REACTIONS (3)
  - Night blindness [Not Recovered/Not Resolved]
  - Metamorphopsia [Not Recovered/Not Resolved]
  - Eye infection bacterial [Not Recovered/Not Resolved]

NARRATIVE: CASE EVENT DATE: 20170725
